FAERS Safety Report 7985259-6 (Version None)
Quarter: 2011Q4

REPORT INFORMATION
  Report Type: 
  Country: None (occurrence: None)
  Receive Date: 20111216
  Receipt Date: 20111213
  Transmission Date: 20120403
  Serious: Yes (Life-Threatening, Hospitalization)
  Sender: FDA-Public Use
  Company Number: US-B.I. PHARMACEUTICALS,INC./RIDGEFIELD-2011-BP-26804BP

PATIENT
  Sex: Female
  Weight: 71.21 kg

DRUGS (7)
  1. ATENOLOL [Concomitant]
     Indication: HYPERTENSION
  2. CRESTOR [Concomitant]
     Indication: DYSLIPIDAEMIA
  3. PRADAXA [Suspect]
     Indication: ATRIAL FIBRILLATION
     Dates: start: 20110520, end: 20111004
  4. ACTONEL [Concomitant]
     Indication: OSTEOPOROSIS
  5. CARDIZEM CD [Concomitant]
     Indication: HYPERTENSION
  6. PLAVIX [Suspect]
     Indication: ACUTE CORONARY SYNDROME
  7. AMIODARONE HCL [Concomitant]
     Indication: ATRIAL FIBRILLATION

REACTIONS (1)
  - HAEMOTHORAX [None]
